FAERS Safety Report 25550213 (Version 1)
Quarter: 2025Q3

REPORT INFORMATION
  Report Type: Spontaneous
  Country: US (occurrence: US)
  Receive Date: 20250714
  Receipt Date: 20250714
  Transmission Date: 20251021
  Serious: Yes (Other)
  Sender: PROACTIV
  Company Number: US-The Proactiv LLC-2180479

PATIENT
  Sex: Male

DRUGS (6)
  1. PROACTIV SOLUTION BLACKHEAD DISSOLVING [Suspect]
     Active Substance: SALICYLIC ACID
  2. PROACTIV ACNE BODY WASH [Suspect]
     Active Substance: SALICYLIC ACID
  3. Proactiv MD Adapalene Gel 0.1% Paraben Free [Concomitant]
  4. Proactiv Pore Cleansing Brush [Concomitant]
  5. COSMETICS [Suspect]
     Active Substance: COSMETICS
  6. COSMETICS [Suspect]
     Active Substance: COSMETICS

REACTIONS (1)
  - Neoplasm malignant [Unknown]
